FAERS Safety Report 4848304-2 (Version None)
Quarter: 2005Q4

REPORT INFORMATION
  Report Type: 
  Country: None (occurrence: None)
  Receive Date: 20051207
  Receipt Date: 20051207
  Transmission Date: 20060501
  Serious: No
  Sender: FDA-Public Use
  Company Number: None

PATIENT

DRUGS (1)
  1. TRIAMINIC CHEST CONGESTION 4 OZ; MFD BY NOVARTIS (PSEUDOEPHEDRINE FREE [Suspect]

REACTIONS (1)
  - MEDICATION ERROR [None]
